FAERS Safety Report 4790158-7 (Version None)
Quarter: 2005Q3

REPORT INFORMATION
  Report Type: 
  Country: None (occurrence: None)
  Receive Date: 20050914
  Receipt Date: 20040720
  Transmission Date: 20060218
  Serious: Yes (Hospitalization)
  Sender: FDA-Public Use
  Company Number: 163-20785-04050413

PATIENT
  Age: 70 Year
  Sex: Female

DRUGS (2)
  1. THALOMID [Suspect]
     Indication: MYELOPROLIFERATIVE DISORDER
     Dosage: 50 MG, DAILY, ORAL
     Route: 048
     Dates: start: 20040409, end: 20040422
  2. PREDNISONE [Concomitant]

REACTIONS (1)
  - NECROSIS ISCHAEMIC [None]
